FAERS Safety Report 8080729-7 (Version None)
Quarter: 2012Q1

REPORT INFORMATION
  Report Type: 
  Country: None (occurrence: None)
  Receive Date: 20120130
  Receipt Date: 20120124
  Transmission Date: 20120608
  Serious: Yes (Other)
  Sender: FDA-Public Use
  Company Number: PHHY2011CA23205

PATIENT
  Sex: Female

DRUGS (1)
  1. ZOLEDRONOC ACID [Suspect]
     Indication: OSTEOPOROSIS
     Dosage: 5 MG, YEARLY
     Route: 042
     Dates: start: 20110119

REACTIONS (12)
  - PNEUMONIA [None]
  - GASTROINTESTINAL DISORDER [None]
  - MYALGIA [None]
  - PALLOR [None]
  - WEIGHT DECREASED [None]
  - ASTHENIA [None]
  - PAIN [None]
  - OSTEOPOROTIC FRACTURE [None]
  - BACK PAIN [None]
  - TOOTH FRACTURE [None]
  - RIB FRACTURE [None]
  - NAUSEA [None]
